FAERS Safety Report 9119616 (Version 1)
Quarter: 2013Q1

REPORT INFORMATION
  Report Type: Spontaneous
  Country: US (occurrence: US)
  Receive Date: 20130226
  Receipt Date: 20130226
  Transmission Date: 20140127
  Serious: Yes (Other)
  Sender: FDA-Public Use
  Company Number: US-CELGENEUS-163-21880-13022939

PATIENT
  Sex: 0

DRUGS (1)
  1. REVLIMID [Suspect]
     Indication: PLASMA CELL MYELOMA
     Dosage: 10 MG DAILY WITH 5 MG INCREMENTS TO 25 MG
     Route: 048

REACTIONS (5)
  - Graft versus host disease [Unknown]
  - Neutropenia [Unknown]
  - Plasma cell myeloma [Unknown]
  - Rash [Unknown]
  - Infection [Unknown]
